FAERS Safety Report 8926005 (Version 1)
Quarter: 2012Q4

REPORT INFORMATION
  Report Type: Report from Study
  Country: US (occurrence: US)
  Receive Date: 20121126
  Receipt Date: 20121126
  Transmission Date: 20130627
  Serious: Yes (Hospitalization)
  Sender: FDA-Public Use
  Company Number: US-009507513-1211USA008269

PATIENT
  Age: 69 Year
  Sex: Male
  Weight: 140.4 kg

DRUGS (9)
  1. MIRALAX [Suspect]
     Route: 065
  2. CAPECITABINE [Suspect]
     Indication: OESOPHAGEAL CARCINOMA
     Dosage: 500 mg, bid for 14 days
     Route: 048
     Dates: start: 20100312
  3. BEVACIZUMAB [Concomitant]
     Indication: OESOPHAGEAL CARCINOMA
  4. OXALIPLATIN [Concomitant]
     Indication: OESOPHAGEAL CARCINOMA
     Dosage: 130 mg/m2, q3w
     Route: 042
     Dates: start: 20100312
  5. OXYCONTIN [Suspect]
  6. SENOKOT [Suspect]
  7. MAGNESIUM CITRATE [Suspect]
  8. COLACE [Suspect]
  9. OXYCODONE [Suspect]

REACTIONS (3)
  - Constipation [Unknown]
  - Vomiting [Unknown]
  - Intestinal obstruction [Unknown]
